FAERS Safety Report 8928964 (Version 7)
Quarter: 2013Q2

REPORT INFORMATION
  Report Type: Spontaneous
  Country: FR (occurrence: FR)
  Receive Date: 20121128
  Receipt Date: 20130605
  Transmission Date: 20140414
  Serious: Yes (Other)
  Sender: FDA-Public Use
  Company Number: FR-GENZYME-POMP-1002586

PATIENT
  Age: 0 Year
  Sex: Female
  Weight: 5 kg

DRUGS (10)
  1. MYOZYME [Suspect]
     Indication: GLYCOGEN STORAGE DISEASE TYPE II
     Dosage: 20 MG/KG, Q2W
     Route: 042
     Dates: start: 20121020, end: 20121116
  2. MABTHERA [Concomitant]
     Indication: IMMUNOMODULATORY THERAPY
     Dosage: 12.5 MG/KG, QD
     Route: 042
     Dates: start: 20121019, end: 20121019
  3. MABTHERA [Concomitant]
     Dosage: 12.5 MG/KG, QD
     Route: 042
     Dates: start: 20121026, end: 20121026
  4. MABTHERA [Concomitant]
     Dosage: 12.5 MG/KG, QD
     Route: 042
     Dates: start: 20121102, end: 20121102
  5. MABTHERA [Concomitant]
     Dosage: 12.5 MG/KG, QD
     Route: 042
     Dates: start: 20121109, end: 20121109
  6. METHOTREXATE [Concomitant]
     Indication: IMMUNOMODULATORY THERAPY
     Dosage: 0.4 MG/KG, QD
     Route: 058
     Dates: start: 20121020, end: 20121022
  7. METHOTREXATE [Concomitant]
     Dosage: 0.4 MG/KG, QD
     Route: 058
     Dates: start: 20121103, end: 20121105
  8. METHOTREXATE [Concomitant]
     Dosage: 0.4 MG/KG, QD
     Route: 058
     Dates: start: 20121116, end: 20121116
  9. TEGELINE [Concomitant]
     Indication: IMMUNOMODULATORY THERAPY
     Dosage: 500 MG, QD
     Route: 042
     Dates: start: 20121022, end: 20121022
  10. IMMUNOGLOBULINS [Concomitant]
     Indication: IMMUNE ENHANCEMENT THERAPY

REACTIONS (7)
  - Hypotonia [Recovered/Resolved]
  - Respiratory distress [Recovered/Resolved]
  - Lip oedema [Recovered/Resolved]
  - Tongue oedema [Recovered/Resolved]
  - Eyelid oedema [Recovered/Resolved]
  - Dyspnoea [Recovered/Resolved]
  - Wheezing [Recovered/Resolved]
